FAERS Safety Report 7277271-X (Version None)
Quarter: 2011Q1

REPORT INFORMATION
  Report Type: 
  Country: None (occurrence: None)
  Receive Date: 20110202
  Receipt Date: 20110202
  Transmission Date: 20110831
  Serious: Yes (Hospitalization)
  Sender: FDA-Public Use
  Company Number: None

PATIENT
  Sex: Female
  Weight: 50 kg

DRUGS (1)
  1. HURRICAINE 20% BEUTLICH PHARMACEUTICALS [Suspect]
     Indication: LOCAL ANAESTHESIA
     Dosage: 1 SPRAY ONCE TOP
     Route: 061
     Dates: start: 20110113, end: 20110113

REACTIONS (2)
  - POST PROCEDURAL COMPLICATION [None]
  - OXYGEN SATURATION DECREASED [None]
